FAERS Safety Report 25161274 (Version 6)
Quarter: 2025Q4

REPORT INFORMATION
  Report Type: Spontaneous
  Country: US (occurrence: US)
  Receive Date: 20250404
  Receipt Date: 20251125
  Transmission Date: 20260118
  Serious: Yes (Other)
  Sender: PFIZER
  Company Number: US-PFIZER INC-202500030274

PATIENT
  Age: 75 Year
  Sex: Female
  Weight: 99.773 kg

DRUGS (5)
  1. BRAFTOVI [Suspect]
     Active Substance: ENCORAFENIB
     Indication: Non-small cell lung cancer
     Dosage: 300 MG
     Route: 048
     Dates: start: 20250225, end: 20250627
  2. BRAFTOVI [Suspect]
     Active Substance: ENCORAFENIB
     Dosage: 450 MG, 1X/DAY (TAKE 6 CAPSULES BY MOUTH ONCE DAILY)
     Route: 048
     Dates: start: 20250303, end: 20250627
  3. BRAFTOVI [Suspect]
     Active Substance: ENCORAFENIB
     Dosage: 225 MG, 1X/DAY (TAKE 225 MG BY MOUTH ONCE DAILY)
     Route: 048
  4. MEKTOVI [Suspect]
     Active Substance: BINIMETINIB
     Indication: Non-small cell lung cancer
     Dosage: 45 MG, 2X/DAY (TAKE 3 TABLETS BY MOUTH TWICE DAILY)
     Route: 048
     Dates: start: 20250303, end: 20250627
  5. MEKTOVI [Suspect]
     Active Substance: BINIMETINIB
     Dosage: 30 MG, 2X/DAY (TAKE 30 MG BY MOUTH TWO TIMES PER DAY)
     Route: 048

REACTIONS (3)
  - Metastases to lung [Recovered/Resolved]
  - Metastases to central nervous system [Unknown]
  - Arthralgia [Recovered/Resolved]

NARRATIVE: CASE EVENT DATE: 20241002
